FAERS Safety Report 4398314-7 (Version None)
Quarter: 2004Q3

REPORT INFORMATION
  Report Type: 
  Country: None (occurrence: None)
  Receive Date: 20040712
  Receipt Date: 20040629
  Transmission Date: 20050211
  Serious: Yes (Hospitalization)
  Sender: FDA-Public Use
  Company Number: 2004043172

PATIENT
  Age: 54 Year
  Sex: Male

DRUGS (3)
  1. UNASYN [Suspect]
     Indication: ILL-DEFINED DISORDER
     Dosage: 3 GRAM (1 IN 1 D), INTRAVENOUS
     Route: 042
     Dates: start: 20040622
  2. CEFAZOLIN SODIUM [Concomitant]
  3. ALL OTHER THERAPEUTIC PRODUCTS (ALL OTHER THERAPEUTIC PRODUCTS) [Concomitant]

REACTIONS (2)
  - INTERSTITIAL LUNG DISEASE [None]
  - VIRAL INFECTION [None]
